FAERS Safety Report 12961316 (Version 2)
Quarter: 2016Q4

REPORT INFORMATION
  Report Type: Spontaneous
  Country: IE (occurrence: IE)
  Receive Date: 20161121
  Receipt Date: 20161206
  Transmission Date: 20170207
  Serious: Yes (Other)
  Sender: FDA-Public Use
  Company Number: IE-PFIZER INC-2016539317

PATIENT
  Age: 62 Year
  Sex: Female

DRUGS (2)
  1. IRINOTECAN HCL [Suspect]
     Active Substance: IRINOTECAN HYDROCHLORIDE
     Indication: COLORECTAL CANCER STAGE IV
     Dosage: UNK
  2. CETUXIMAB [Concomitant]
     Active Substance: CETUXIMAB
     Indication: COLORECTAL CANCER STAGE IV
     Dosage: UNK

REACTIONS (1)
  - Skin hyperpigmentation [Unknown]
